FAERS Safety Report 9699022 (Version 1)
Quarter: 2013Q4

REPORT INFORMATION
  Report Type: Spontaneous
  Country: US (occurrence: None)
  Receive Date: 20131118
  Receipt Date: 20131118
  Transmission Date: 20140711
  Serious: Yes (Other)
  Sender: FDA-Public Use
  Company Number: 2013SA116904

PATIENT
  Age: 22 Year
  Sex: Female

DRUGS (1)
  1. ICY HOT [Suspect]
     Indication: PAIN
     Dosage: ;ONCE; UNKNOWN
     Dates: start: 20131110

REACTIONS (1)
  - Application site burn [None]
